FAERS Safety Report 5960221-3 (Version None)
Quarter: 2008Q4

REPORT INFORMATION
  Report Type: 
  Country: None (occurrence: None)
  Receive Date: 20081120
  Receipt Date: 20081114
  Transmission Date: 20090506
  Serious: Yes (Hospitalization)
  Sender: FDA-Public Use
  Company Number: US-ELI_LILLY_AND_COMPANY-US200811003638

PATIENT
  Sex: Female
  Weight: 102.95 kg

DRUGS (20)
  1. BYETTA [Suspect]
     Indication: TYPE 2 DIABETES MELLITUS
     Dosage: 5 UG, 2/D
     Route: 058
     Dates: start: 20050101, end: 20050101
  2. BYETTA [Suspect]
     Dosage: 10 UG, 2/D
     Route: 058
     Dates: start: 20050101
  3. AMARYL [Concomitant]
     Indication: TYPE 2 DIABETES MELLITUS
     Dosage: UNK, UNKNOWN
  4. LANTUS [Concomitant]
     Indication: TYPE 2 DIABETES MELLITUS
     Dosage: 39 U, UNKNOWN
  5. LOTENSIN [Concomitant]
     Indication: HYPERTENSION
     Dosage: 10 MG, UNKNOWN
  6. NORVASC [Concomitant]
     Indication: HYPERTENSION
     Dosage: 10 MG, UNKNOWN
  7. SYNTHROID [Concomitant]
     Indication: HYPOTHYROIDISM
     Dosage: 100 MG, UNKNOWN
  8. AMBIEN [Concomitant]
     Indication: SLEEP DISORDER
     Dosage: 10 MG, UNKNOWN
  9. REQUIP [Concomitant]
     Indication: DYSKINESIA
     Dosage: UNK, UNKNOWN
  10. DARVOCET [Concomitant]
     Indication: FIBROMYALGIA
     Dosage: UNK, UNKNOWN
  11. VYTORIN [Concomitant]
     Indication: BLOOD CHOLESTEROL
     Dosage: UNK, UNKNOWN
  12. ATIVAN [Concomitant]
     Indication: ANXIETY
     Dosage: 1 MG, UNKNOWN
  13. PROVIGIL [Concomitant]
     Indication: SOMNOLENCE
     Dosage: 200 MG, UNKNOWN
  14. PRILOSEC [Concomitant]
     Indication: REFLUX OESOPHAGITIS
     Dosage: UNK, UNKNOWN
  15. FLEXERIL [Concomitant]
     Indication: MUSCLE RELAXANT THERAPY
     Dosage: UNK, UNKNOWN
  16. LOPERAMIDE HCL [Concomitant]
     Indication: DIARRHOEA
     Dosage: UNK, OTHER
  17. DIFLUCAN [Concomitant]
     Indication: FUNGAL INFECTION
     Dosage: 150 MG, UNKNOWN
     Route: 048
  18. BENTYL [Concomitant]
     Indication: FEELING OF RELAXATION
     Dosage: UNK, UNKNOWN
  19. NEURONTIN [Concomitant]
     Indication: FIBROMYALGIA
     Dosage: UNK, UNKNOWN
  20. VITAMIN B-12 [Concomitant]
     Dosage: 1000 UG, MONTHLY (1/M)

REACTIONS (20)
  - ADRENAL ADENOMA [None]
  - BACK PAIN [None]
  - BLOOD CALCIUM INCREASED [None]
  - DYSPNOEA [None]
  - HYPERPARATHYROIDISM [None]
  - HYPOAESTHESIA [None]
  - INTERVERTEBRAL DISC PROTRUSION [None]
  - LOSS OF CONSCIOUSNESS [None]
  - OSTEOPENIA [None]
  - OSTEOPOROSIS [None]
  - PAIN [None]
  - PANIC ATTACK [None]
  - PLEURISY [None]
  - PNEUMONIA [None]
  - RENAL CYST [None]
  - RENAL IMPAIRMENT [None]
  - THROAT TIGHTNESS [None]
  - URINARY TRACT INFECTION [None]
  - WEIGHT DECREASED [None]
  - WEIGHT INCREASED [None]
